FAERS Safety Report 10253518 (Version 1)
Quarter: 2014Q2

REPORT INFORMATION
  Report Type: Spontaneous
  Country: US (occurrence: US)
  Receive Date: 20140623
  Receipt Date: 20140623
  Transmission Date: 20141212
  Serious: Yes (Death)
  Sender: FDA-Public Use
  Company Number: US-ABBVIE-14P-163-1250833-00

PATIENT
  Age: 58 Year
  Sex: Male

DRUGS (2)
  1. ANDROGEL [Suspect]
     Indication: BLOOD TESTOSTERONE DECREASED
     Dates: start: 201110, end: 201201
  2. AXIRON [Concomitant]
     Indication: BLOOD TESTOSTERONE DECREASED
     Dates: end: 20120417

REACTIONS (1)
  - Myocardial infarction [Fatal]
